FAERS Safety Report 26203831 (Version 1)
Quarter: 2025Q4

REPORT INFORMATION
  Report Type: Spontaneous
  Country: GB (occurrence: GB)
  Receive Date: 20251226
  Receipt Date: 20251226
  Transmission Date: 20260118
  Serious: Yes (Other)
  Sender: MSN LABORATORIES PRIVATE LIMITED
  Company Number: None

PATIENT

DRUGS (2)
  1. ATORVASTATIN [Suspect]
     Active Substance: ATORVASTATIN
     Indication: Blood cholesterol increased
     Dosage: 1 AT NIGHT-TO LOWER CHOLESTEROL, PROTECT ARTERIES
     Route: 065
     Dates: start: 20251114
  2. ATORVASTATIN [Concomitant]
     Active Substance: ATORVASTATIN
     Dosage: 1 AT NIGHT-TO LOWER CHOLESTEROL, PROTECT ARTERIES
     Route: 065
     Dates: start: 20251114

REACTIONS (2)
  - Depressive symptom [Recovered/Resolved]
  - Suicidal ideation [Unknown]

NARRATIVE: CASE EVENT DATE: 20251117
